FAERS Safety Report 21081952 (Version 1)
Quarter: 2022Q3

REPORT INFORMATION
  Report Type: Spontaneous
  Country: US (occurrence: None)
  Receive Date: 20220714
  Receipt Date: 20220714
  Transmission Date: 20221027
  Serious: Yes (Hospitalization)
  Sender: FDA-Public Use
  Company Number: None

PATIENT
  Age: 78 Year
  Sex: Male
  Weight: 48.08 kg

DRUGS (2)
  1. RIVAROXABAN [Suspect]
     Active Substance: RIVAROXABAN
     Indication: Vascular operation
     Dosage: FREQUENCY : TWICE A DAY;?
     Route: 048
     Dates: start: 20220527, end: 20220529
  2. ASPIRIN [Suspect]
     Active Substance: ASPIRIN
     Indication: Vascular operation
     Dosage: FREQUENCY : DAILY;?
     Route: 048
     Dates: start: 20220526

REACTIONS (2)
  - Rectal haemorrhage [None]
  - Haemorrhage [None]

NARRATIVE: CASE EVENT DATE: 20220530
